FAERS Safety Report 6985127-2 (Version None)
Quarter: 2010Q3

REPORT INFORMATION
  Report Type: 
  Country: None (occurrence: None)
  Receive Date: 20100915
  Receipt Date: 20100913
  Transmission Date: 20110219
  Serious: Yes (Hospitalization)
  Sender: FDA-Public Use
  Company Number: US-GILEAD-2010-0031803

PATIENT
  Age: 48 Year
  Sex: Female
  Weight: 62.198 kg

DRUGS (6)
  1. LETAIRIS [Suspect]
     Indication: PULMONARY ARTERIAL HYPERTENSION
     Route: 048
     Dates: start: 20100824
  2. REVATIO [Concomitant]
  3. ZANTAC [Concomitant]
  4. NAPROXEN [Concomitant]
  5. VICODIN [Concomitant]
  6. CALCIUM [Concomitant]

REACTIONS (2)
  - PNEUMONIA [None]
  - SYNCOPE [None]
